FAERS Safety Report 9694582 (Version 1)
Quarter: 2013Q4

REPORT INFORMATION
  Report Type: Spontaneous
  Country: AU (occurrence: AU)
  Receive Date: 20131118
  Receipt Date: 20131118
  Transmission Date: 20140711
  Serious: Yes (Other)
  Sender: FDA-Public Use
  Company Number: AU-ABBVIE-13P-008-1158226-00

PATIENT
  Age: 13 Year
  Sex: Male

DRUGS (2)
  1. EPILIM [Suspect]
     Indication: PRODUCT USED FOR UNKNOWN INDICATION
  2. RITALIN [Suspect]
     Indication: PRODUCT USED FOR UNKNOWN INDICATION

REACTIONS (13)
  - Dyskinesia [Unknown]
  - Heart rate increased [Unknown]
  - Hyperhidrosis [Unknown]
  - Lip swelling [Unknown]
  - Pallor [Unknown]
  - Inappropriate affect [Unknown]
  - Formication [Unknown]
  - Coma [Unknown]
  - Eye pain [Unknown]
  - Muscle twitching [Unknown]
  - Vision blurred [Unknown]
  - Swelling face [Unknown]
  - Confusional state [Unknown]
